FAERS Safety Report 9565601 (Version 1)
Quarter: 2013Q3

REPORT INFORMATION
  Report Type: Spontaneous
  Country: US (occurrence: US)
  Receive Date: 20130930
  Receipt Date: 20130930
  Transmission Date: 20140515
  Serious: Yes (Other)
  Sender: FDA-Public Use
  Company Number: US-BAYER-2013-117608

PATIENT
  Age: 23 Year
  Sex: Female
  Weight: 96.15 kg

DRUGS (3)
  1. YASMIN [Suspect]
  2. NAPROXEN [Concomitant]
  3. CEPHALEXIN [Concomitant]

REACTIONS (1)
  - Thrombophlebitis superficial [Recovering/Resolving]
